APPROVED DRUG PRODUCT: LENALIDOMIDE
Active Ingredient: LENALIDOMIDE
Strength: 15MG
Dosage Form/Route: CAPSULE;ORAL
Application: A211846 | Product #003 | TE Code: AB
Applicant: SUN PHARMACEUTICAL INDUSTRIES LTD
Approved: Feb 8, 2023 | RLD: No | RS: No | Type: RX